FAERS Safety Report 14588740 (Version 2)
Quarter: 2018Q2

REPORT INFORMATION
  Report Type: Spontaneous
  Country: US (occurrence: US)
  Receive Date: 20180301
  Receipt Date: 20180410
  Transmission Date: 20180711
  Serious: No
  Sender: FDA-Public Use
  Company Number: PHEH2018US008194

PATIENT
  Sex: Female

DRUGS (2)
  1. LENVATINIB [Suspect]
     Active Substance: LENVATINIB
     Indication: RENAL NEOPLASM
     Dosage: 10 MG, QD
     Route: 048
     Dates: start: 20170630
  2. AFINITOR [Suspect]
     Active Substance: EVEROLIMUS
     Indication: RENAL CANCER
     Route: 065

REACTIONS (7)
  - Neuropathy peripheral [Unknown]
  - Asthenia [Unknown]
  - Paraesthesia [Unknown]
  - Frostbite [Unknown]
  - Nasopharyngitis [Unknown]
  - Stomatitis [Unknown]
  - Pyrexia [Unknown]
